FAERS Safety Report 23241712 (Version 2)
Quarter: 2024Q1

REPORT INFORMATION
  Report Type: Spontaneous
  Country: US (occurrence: US)
  Receive Date: 20231129
  Receipt Date: 20240102
  Transmission Date: 20240410
  Serious: No
  Sender: FDA-Public Use
  Company Number: US-PFIZER INC-PV202300128211

PATIENT
  Age: 42 Year
  Sex: Female

DRUGS (1)
  1. SOMAVERT [Suspect]
     Active Substance: PEGVISOMANT
     Indication: Acromegaly
     Dosage: 20 MG (3X WEEKLY/ THREE TIMES A WEEK)
     Route: 058
     Dates: start: 20230802

REACTIONS (2)
  - Insulin-like growth factor abnormal [Unknown]
  - Off label use [Unknown]
